FAERS Safety Report 4278476-2 (Version None)
Quarter: 2004Q1

REPORT INFORMATION
  Report Type: 
  Country: None (occurrence: None)
  Receive Date: 20040123
  Receipt Date: 20030910
  Transmission Date: 20041129
  Serious: Yes (Hospitalization)
  Sender: FDA-Public Use
  Company Number: WAES 0309USA01174

PATIENT
  Age: 49 Year
  Sex: Female
  Weight: 53 kg

DRUGS (10)
  1. [THERAPY UNSPECIFIED] [Concomitant]
     Dates: start: 19980101
  2. ANALGESIC OR ANESTHETIC (UNSPECIFIED) [Concomitant]
  3. CALCIUM CARBONATE [Concomitant]
  4. PREMARIN [Concomitant]
     Dates: start: 19920101
  5. LASIX [Concomitant]
     Indication: OEDEMA PERIPHERAL
     Dates: start: 19840401
  6. NEURONTIN [Concomitant]
     Dates: start: 20010813, end: 20010901
  7. ACTONEL [Concomitant]
  8. VIOXX [Suspect]
     Indication: OSTEOARTHRITIS
     Route: 048
     Dates: start: 19990101, end: 20020101
  9. VIOXX [Suspect]
     Indication: FIBROMYALGIA
     Route: 048
     Dates: start: 19990101, end: 20020101
  10. VITAMIN E [Concomitant]

REACTIONS (12)
  - ANXIETY [None]
  - BODY TEMPERATURE DECREASED [None]
  - BONE GRAFT [None]
  - DEPRESSION [None]
  - FALL [None]
  - GAIT DISTURBANCE [None]
  - MEMORY IMPAIRMENT [None]
  - MUSCULOSKELETAL DISORDER [None]
  - NECK INJURY [None]
  - OSTEOPOROSIS [None]
  - RADIUS FRACTURE [None]
  - TRANSIENT ISCHAEMIC ATTACK [None]
